FAERS Safety Report 8812207 (Version 2)
Quarter: 2013Q2

REPORT INFORMATION
  Report Type: Spontaneous
  Country: US (occurrence: US)
  Receive Date: 20120927
  Receipt Date: 20130404
  Transmission Date: 20140414
  Serious: Yes (Death, Other)
  Sender: FDA-Public Use
  Company Number: US-ROCHE-1126887

PATIENT
  Age: 70 Year
  Sex: Male

DRUGS (2)
  1. AVASTIN [Suspect]
     Indication: BREAST CANCER FEMALE
     Route: 065
     Dates: start: 20060419, end: 20060816
  2. CARBOPLATIN [Concomitant]
     Route: 065
     Dates: start: 20060517

REACTIONS (4)
  - Death [Fatal]
  - VIIth nerve paralysis [Unknown]
  - Liver function test abnormal [Unknown]
  - Malaise [Unknown]
